FAERS Safety Report 11320949 (Version 3)
Quarter: 2015Q3

REPORT INFORMATION
  Report Type: Spontaneous
  Country: US (occurrence: US)
  Receive Date: 20150729
  Receipt Date: 20150930
  Transmission Date: 20151125
  Serious: No
  Sender: FDA-Public Use
  Company Number: US-PFIZER INC-2015249602

PATIENT
  Age: 64 Year
  Sex: Female
  Weight: 56 kg

DRUGS (4)
  1. ESTRADIOL. [Suspect]
     Active Substance: ESTRADIOL
     Indication: HOT FLUSH
  2. MEDROXYPROGESTERONE ACETATE. [Suspect]
     Active Substance: MEDROXYPROGESTERONE ACETATE
     Indication: MENOPAUSAL SYMPTOMS
     Dosage: 2.5 MG, 1X/DAY
     Route: 048
     Dates: start: 201409, end: 201503
  3. MEDROXYPROGESTERONE ACETATE. [Suspect]
     Active Substance: MEDROXYPROGESTERONE ACETATE
     Indication: HOT FLUSH
  4. ESTRADIOL. [Suspect]
     Active Substance: ESTRADIOL
     Indication: MENOPAUSAL SYMPTOMS
     Dosage: 0.5 MG, 1X/DAY(IN THE MORNING)
     Dates: start: 201409, end: 201503

REACTIONS (7)
  - Blood cholesterol increased [Recovered/Resolved]
  - Low density lipoprotein increased [Recovered/Resolved]
  - Product use issue [Recovered/Resolved]
  - High density lipoprotein decreased [Unknown]
  - Hirsutism [Recovered/Resolved]
  - Alopecia [Recovered/Resolved]
  - Acne [Recovered/Resolved]

NARRATIVE: CASE EVENT DATE: 2014
